FAERS Safety Report 5681118-2 (Version None)
Quarter: 2008Q1

REPORT INFORMATION
  Report Type: 
  Country: None (occurrence: None)
  Receive Date: 20080325
  Receipt Date: 20080310
  Transmission Date: 20080703
  Serious: Yes (Other)
  Sender: FDA-Public Use
  Company Number: 2008000555

PATIENT
  Age: 58 Year
  Sex: Male

DRUGS (1)
  1. TARCEVA [Suspect]
     Indication: LUNG NEOPLASM MALIGNANT
     Dosage: 100 MG, QD, ORAL
     Route: 048
     Dates: start: 20071220, end: 20080110

REACTIONS (5)
  - ACNE [None]
  - DIARRHOEA [None]
  - INFLAMMATION [None]
  - ORAL DISORDER [None]
  - TOOTH DISORDER [None]
